FAERS Safety Report 10228753 (Version 3)
Quarter: 2014Q2

REPORT INFORMATION
  Report Type: Spontaneous
  Country: US (occurrence: US)
  Receive Date: 20140610
  Receipt Date: 20140624
  Transmission Date: 20141212
  Serious: Yes (Hospitalization, Other)
  Sender: FDA-Public Use
  Company Number: US-PFIZER INC-2014154219

PATIENT
  Age: 54 Year
  Sex: Female

DRUGS (5)
  1. XANAX [Suspect]
     Dosage: 4 MG, DAILY
  2. XANAX [Suspect]
     Dosage: UNK
  3. XANAX [Suspect]
     Dosage: 8 MG, 1X/DAY
  4. XANAX [Suspect]
     Dosage: 8 MG, DAILY
     Dates: end: 201211
  5. CYMBALTA [Concomitant]
     Indication: BACK DISORDER
     Dosage: UNK
     Dates: end: 201209

REACTIONS (26)
  - Malaise [Unknown]
  - Psychotic disorder [Unknown]
  - Hallucination [Unknown]
  - Illusion [Unknown]
  - Drug withdrawal syndrome [Unknown]
  - Pain [Unknown]
  - Burning sensation [Unknown]
  - Bedridden [Unknown]
  - Activities of daily living impaired [Unknown]
  - Feeling abnormal [Unknown]
  - Memory impairment [Unknown]
  - Vomiting [Unknown]
  - Diarrhoea [Unknown]
  - Tremor [Unknown]
  - Muscle spasms [Unknown]
  - Neurological symptom [Unknown]
  - Gait disturbance [Unknown]
  - Musculoskeletal stiffness [Unknown]
  - Fibromyalgia [Unknown]
  - Dysgraphia [Unknown]
  - Fatigue [Unknown]
  - Skin burning sensation [Unknown]
  - Facial pain [Unknown]
  - Pain of skin [Unknown]
  - Drug ineffective [Unknown]
  - Malaise [Unknown]
